FAERS Safety Report 10285069 (Version 1)
Quarter: 2014Q3

REPORT INFORMATION
  Report Type: Spontaneous
  Country: US (occurrence: None)
  Receive Date: 20140703
  Receipt Date: 20140703
  Transmission Date: 20150326
  Serious: Yes (Hospitalization)
  Sender: FDA-Public Use
  Company Number: None

PATIENT
  Age: 59 Year
  Sex: Female
  Weight: 81.7 kg

DRUGS (2)
  1. SOFOSBUVIR [Suspect]
     Active Substance: SOFOSBUVIR
     Route: 048
  2. RIBAVIRIN. [Suspect]
     Active Substance: RIBAVIRIN
     Indication: CHRONIC HEPATITIS C
     Route: 048
     Dates: start: 20140128, end: 20140428

REACTIONS (8)
  - Anaemia [None]
  - Nasal congestion [None]
  - Productive cough [None]
  - Renal failure acute [None]
  - Hypovolaemia [None]
  - Oropharyngeal pain [None]
  - Nausea [None]
  - Dysphonia [None]

NARRATIVE: CASE EVENT DATE: 20140424
